FAERS Safety Report 18532539 (Version 1)
Quarter: 2020Q4

REPORT INFORMATION
  Report Type: Spontaneous
  Country: IT (occurrence: IT)
  Receive Date: 20201123
  Receipt Date: 20201123
  Transmission Date: 20210114
  Serious: Yes (Other)
  Sender: FDA-Public Use
  Company Number: IT-LUPIN PHARMACEUTICALS INC.-2020-09208

PATIENT
  Age: 28 Year
  Sex: Female

DRUGS (4)
  1. AZITHROMYCIN ANHYDROUS. [Suspect]
     Active Substance: AZITHROMYCIN ANHYDROUS
     Indication: COVID-19
     Dosage: UNK
     Route: 065
  2. HYDROXYCHLOROQUINE [Suspect]
     Active Substance: HYDROXYCHLOROQUINE
     Indication: COVID-19
     Dosage: UNK
     Route: 065
  3. SECUKINUMAB. [Concomitant]
     Active Substance: SECUKINUMAB
     Indication: HIDRADENITIS
     Dosage: 300 MILLIGRAM (ON WEEKS 0, 1, 2, 3 AND 4, FOLLOWED BY MONTHLY MAINTENANCE DOSES)
     Route: 058
  4. SECUKINUMAB. [Concomitant]
     Active Substance: SECUKINUMAB
     Indication: SYSTEMIC LUPUS ERYTHEMATOSUS

REACTIONS (1)
  - Off label use [Unknown]
